FAERS Safety Report 22079133 (Version 1)
Quarter: 2023Q1

REPORT INFORMATION
  Report Type: Spontaneous
  Country: US (occurrence: US)
  Receive Date: 20230309
  Receipt Date: 20230309
  Transmission Date: 20230418
  Serious: No
  Sender: FDA-Public Use
  Company Number: US-BRISTOL-MYERS SQUIBB COMPANY-2023-034928

PATIENT
  Age: 76 Year
  Sex: Female
  Weight: 45.36 kg

DRUGS (17)
  1. ELIQUIS [Suspect]
     Active Substance: APIXABAN
     Indication: Thrombosis
     Route: 048
     Dates: start: 202209
  2. ELIQUIS [Suspect]
     Active Substance: APIXABAN
     Indication: Pulmonary thrombosis
  3. LEVOTHYROXINE [Concomitant]
     Active Substance: LEVOTHYROXINE
     Indication: Product used for unknown indication
  4. HYDROCORTISONE [Concomitant]
     Active Substance: HYDROCORTISONE
     Indication: Product used for unknown indication
  5. DIGOXIN [Concomitant]
     Active Substance: DIGOXIN
     Indication: Product used for unknown indication
  6. CYTOMEL [Concomitant]
     Active Substance: LIOTHYRONINE SODIUM
     Indication: Product used for unknown indication
  7. TEMAZEPAM [Concomitant]
     Active Substance: TEMAZEPAM
     Indication: Product used for unknown indication
  8. TIZANIDINE [Concomitant]
     Active Substance: TIZANIDINE
     Indication: Product used for unknown indication
  9. BUMEX [Concomitant]
     Active Substance: BUMETANIDE
     Indication: Product used for unknown indication
  10. GABAPENTIN [Concomitant]
     Active Substance: GABAPENTIN
     Indication: Product used for unknown indication
  11. MYRBETRIQ [Concomitant]
     Active Substance: MIRABEGRON
     Indication: Product used for unknown indication
  12. RECLAST [Concomitant]
     Active Substance: ZOLEDRONIC ACID
     Indication: Osteoporosis
     Dosage: RECLAST IN JAN FOR OSTEOPOROSIS, ONCE A YEAR.
  13. SYMBICORT [Concomitant]
     Active Substance: BUDESONIDE\FORMOTEROL FUMARATE DIHYDRATE
     Indication: Product used for unknown indication
  14. AZELASTINE HYDROCHLORIDE [Concomitant]
     Active Substance: AZELASTINE HYDROCHLORIDE
     Indication: Product used for unknown indication
  15. COMBIGAN [Concomitant]
     Active Substance: BRIMONIDINE TARTRATE\TIMOLOL MALEATE
     Indication: Product used for unknown indication
  16. VITAMINS NOS [Concomitant]
     Active Substance: VITAMINS
     Indication: Product used for unknown indication
  17. HYDRALAZINE [Concomitant]
     Active Substance: HYDRALAZINE HYDROCHLORIDE
     Indication: Blood pressure measurement

REACTIONS (1)
  - Muscle spasms [Unknown]

NARRATIVE: CASE EVENT DATE: 20230101
